FAERS Safety Report 7560291-5 (Version None)
Quarter: 2011Q2

REPORT INFORMATION
  Report Type: 
  Country: None (occurrence: None)
  Receive Date: 20110621
  Receipt Date: 20110607
  Transmission Date: 20111010
  Serious: Yes (Other)
  Sender: FDA-Public Use
  Company Number: US-JNJFOC-20101000218

PATIENT
  Sex: Female
  Weight: 73.94 kg

DRUGS (10)
  1. ACETAMINOPHEN [Concomitant]
     Indication: PREMEDICATION
     Dates: start: 20050106, end: 20090602
  2. INFLIXIMAB, RECOMBINANT [Suspect]
     Dosage: ADMINISTERED AT APPROXIMATELY EVERY 8 -10 WEEKS
     Route: 042
     Dates: start: 20050106, end: 20050519
  3. INFLIXIMAB, RECOMBINANT [Suspect]
     Route: 042
     Dates: start: 20041103, end: 20041103
  4. INFLIXIMAB, RECOMBINANT [Suspect]
     Dosage: ADMINISTERED AT APPROXIMATELY EVERY 8 -10 WEEKS
     Route: 042
     Dates: start: 20060123, end: 20090602
  5. HUMIRA [Concomitant]
     Indication: CROHN'S DISEASE
  6. ACETAMINOPHEN [Concomitant]
     Dates: start: 20030127, end: 20031203
  7. INFLIXIMAB, RECOMBINANT [Suspect]
     Dosage: ADMINISTERED AT APPROXIMATELY EVERY 6-8 WEEKS
     Route: 042
     Dates: start: 20030127, end: 20031203
  8. ANTIHISTAMINES NOS [Concomitant]
     Indication: PREMEDICATION
     Dates: start: 20050106, end: 20090602
  9. INFLIXIMAB, RECOMBINANT [Suspect]
     Indication: CROHN'S DISEASE
     Dosage: 4 INFUSIONS ADMINISTERED PRIOR TO TREAT REGISTRATION
     Route: 042
  10. ANTIHISTAMINES NOS [Concomitant]
     Dates: start: 20030127, end: 20031203

REACTIONS (1)
  - BASAL CELL CARCINOMA [None]
